FAERS Safety Report 9257205 (Version 2)
Quarter: 2013Q3

REPORT INFORMATION
  Report Type: Spontaneous
  Country: BR (occurrence: BR)
  Receive Date: 20130426
  Receipt Date: 20130819
  Transmission Date: 20140515
  Serious: Yes (Other)
  Sender: FDA-Public Use
  Company Number: PHHY2012BR016041

PATIENT
  Sex: Male
  Weight: 90 kg

DRUGS (7)
  1. RASILEZ AMLO [Suspect]
     Indication: HYPERTENSION
     Dosage: 1 DF (300 MG ALSKI AND 10 MG AMLO AT NIGHT), QD
     Route: 048
  2. DIOVAN AMLO FIX [Suspect]
     Indication: HYPERTENSION
     Dosage: 1 DF (320 MG VALS/10 MG AML, IN THE MORNING), QD
     Route: 048
  3. HYDROCHLOROTHIAZIDE [Concomitant]
     Indication: HYPERTENSION
     Dosage: 1 DF, IN MORNING
     Route: 048
  4. METFORMIN [Concomitant]
     Indication: DIABETES MELLITUS
     Dosage: 2 DF, QD
     Route: 048
  5. SIMVASTATIN [Concomitant]
     Indication: CEREBROVASCULAR ACCIDENT
     Dosage: 1 DF, AT NIGHT
  6. ASPIRIN ^BAYER^ [Concomitant]
     Indication: PROPHYLAXIS
     Dosage: 1 DF, AFTER LUNCH
     Route: 048
  7. JANUMET [Concomitant]
     Indication: DIABETES MELLITUS
     Dosage: 2 DF(50/1000MG), DAILY
     Route: 048

REACTIONS (5)
  - Coronary artery occlusion [Not Recovered/Not Resolved]
  - Renal disorder [Not Recovered/Not Resolved]
  - Blood glucose increased [Not Recovered/Not Resolved]
  - Blood pressure increased [Not Recovered/Not Resolved]
  - Blood triglycerides increased [Not Recovered/Not Resolved]
